FAERS Safety Report 6425202-4 (Version None)
Quarter: 2009Q4

REPORT INFORMATION
  Report Type: 
  Country: None (occurrence: None)
  Receive Date: 20091102
  Receipt Date: 20091102
  Transmission Date: 20100525
  Serious: Yes (Hospitalization)
  Sender: FDA-Public Use
  Company Number: None

PATIENT
  Sex: Female
  Weight: 120 kg

DRUGS (2)
  1. CISPLATIN [Suspect]
     Dosage: 165
     Dates: end: 20091005
  2. ETOPOSIDE [Suspect]
     Dosage: 660 MG
     Dates: end: 20091007

REACTIONS (2)
  - TUMOUR LYSIS SYNDROME [None]
  - URATE NEPHROPATHY [None]
